FAERS Safety Report 4991509-0 (Version None)
Quarter: 2006Q2

REPORT INFORMATION
  Report Type: 
  Country: None (occurrence: None)
  Receive Date: 20060502
  Receipt Date: 20060421
  Transmission Date: 20061013
  Serious: Yes (Other)
  Sender: FDA-Public Use
  Company Number: 2006-00950

PATIENT
  Age: 63 Year

DRUGS (8)
  1. VELCADE [Suspect]
     Indication: MULTIPLE MYELOMA
     Dosage: 1.30 MG/M2, INTRAVENOUS
     Route: 042
  2. DOXORUBICIN HCL [Suspect]
     Indication: MULTIPLE MYELOMA
     Dosage: SEE IMAGE
     Route: 042
  3. DEXAMETHASONE [Suspect]
     Indication: MULTIPLE MYELOMA
     Dosage: 40.00 MG, ORAL
     Route: 048
  4. CYCLOPHOSPHAMIDE [Suspect]
     Indication: MULTIPLE MYELOMA
     Dosage: 1000.00 MG/M2, INTRAVENOUS
     Route: 042
  5. NEUPOGEN [Suspect]
     Indication: MULTIPLE MYELOMA
     Dosage: 10.00 UG/KG, SUBCUTANEOUS
     Route: 058
  6. OMEPRAZOLE [Concomitant]
  7. OXYCONTIN [Concomitant]
  8. CIPROFLOXACIN [Concomitant]

REACTIONS (5)
  - AMNESIA [None]
  - DEPRESSED LEVEL OF CONSCIOUSNESS [None]
  - EYE MOVEMENT DISORDER [None]
  - MONOPLEGIA [None]
  - NEUROLOGICAL SYMPTOM [None]
